FAERS Safety Report 13864700 (Version 1)
Quarter: 2017Q3

REPORT INFORMATION
  Report Type: Spontaneous
  Country: US (occurrence: US)
  Receive Date: 20170813
  Receipt Date: 20170813
  Transmission Date: 20171127
  Serious: Yes (Disabling, Other)
  Sender: FDA-Public Use
  Company Number: None

PATIENT
  Age: 54 Year
  Sex: Female
  Weight: 87.75 kg

DRUGS (3)
  1. CLINDAMYCIN 300MG CAPSULES [Suspect]
     Active Substance: CLINDAMYCIN
     Indication: ROOT CANAL INFECTION
     Dosage: ?          QUANTITY:1 CAPSULE(S);?
     Route: 048
     Dates: start: 20170801, end: 20170809
  2. MULTI VITAMIN [Concomitant]
     Active Substance: VITAMINS
  3. VITAMIN C [Concomitant]
     Active Substance: ASCORBIC ACID

REACTIONS (3)
  - Retinal detachment [None]
  - Visual acuity reduced [None]
  - Visual impairment [None]

NARRATIVE: CASE EVENT DATE: 20170808
